FAERS Safety Report 18308782 (Version 3)
Quarter: 2020Q4

REPORT INFORMATION
  Report Type: Spontaneous
  Country: US (occurrence: US)
  Receive Date: 20200924
  Receipt Date: 20201021
  Transmission Date: 20210113
  Serious: No
  Sender: FDA-Public Use
  Company Number: US-PFIZER INC-2020366143

PATIENT
  Age: 62 Year
  Sex: Female
  Weight: 58 kg

DRUGS (2)
  1. IBRANCE [Suspect]
     Active Substance: PALBOCICLIB
     Dosage: 125 MG, CYCLIC
     Dates: start: 20200918, end: 2020
  2. IBRANCE [Suspect]
     Active Substance: PALBOCICLIB
     Dosage: 125 MG
     Dates: start: 20200806, end: 2020

REACTIONS (3)
  - Diarrhoea [Unknown]
  - Constipation [Unknown]
  - Sensory disturbance [Recovered/Resolved]

NARRATIVE: CASE EVENT DATE: 2020
